FAERS Safety Report 6032668-0 (Version None)
Quarter: 2009Q1

REPORT INFORMATION
  Report Type: 
  Country: None (occurrence: None)
  Receive Date: 20090109
  Receipt Date: 20090106
  Transmission Date: 20090719
  Serious: Yes (Hospitalization)
  Sender: FDA-Public Use
  Company Number: US-JNJFOC-20081201964

PATIENT
  Sex: Female
  Weight: 53.98 kg

DRUGS (3)
  1. INVEGA [Suspect]
     Indication: PSYCHOTIC DISORDER
  2. SEROQUEL [Concomitant]
     Indication: PSYCHOTIC DISORDER
  3. BENZTROPINE MESYLATE [Concomitant]
     Indication: ADVERSE DRUG REACTION

REACTIONS (2)
  - DYSKINESIA [None]
  - PSYCHOTIC DISORDER [None]
